FAERS Safety Report 16887655 (Version 1)
Quarter: 2019Q4

REPORT INFORMATION
  Report Type: Spontaneous
  Country: CN (occurrence: CN)
  Receive Date: 20191005
  Receipt Date: 20191005
  Transmission Date: 20200122
  Serious: Yes (Other)
  Sender: FDA-Public Use
  Company Number: CN-JNJFOC-20190933884

PATIENT
  Age: 35 Year
  Sex: Female

DRUGS (2)
  1. CHILDRENS MOTRIN [Suspect]
     Active Substance: IBUPROFEN
     Indication: ABDOMINAL DISCOMFORT
     Route: 048
     Dates: start: 20190923
  2. CHILDRENS MOTRIN [Suspect]
     Active Substance: IBUPROFEN
     Indication: PYREXIA

REACTIONS (7)
  - Abdominal pain [Unknown]
  - Dizziness [Unknown]
  - Product administered to patient of inappropriate age [Unknown]
  - Headache [Unknown]
  - Overdose [Unknown]
  - Hyperhidrosis [Unknown]
  - Peripheral coldness [Unknown]

NARRATIVE: CASE EVENT DATE: 20190923
